FAERS Safety Report 16655234 (Version 2)
Quarter: 2019Q3

REPORT INFORMATION
  Report Type: Spontaneous
  Country: US (occurrence: US)
  Receive Date: 20190801
  Receipt Date: 20190826
  Transmission Date: 20191004
  Serious: No
  Sender: FDA-Public Use
  Company Number: US-AMGEN-USASP2019120020

PATIENT
  Age: 63 Year
  Sex: Female
  Weight: 116.1 kg

DRUGS (2)
  1. REPATHA [Suspect]
     Active Substance: EVOLOCUMAB
     Indication: PRODUCT USED FOR UNKNOWN INDICATION
     Dosage: 140 MILLIGRAM, Q2WK
     Route: 065
     Dates: start: 2018
  2. REPATHA [Suspect]
     Active Substance: EVOLOCUMAB
     Dosage: UNK, QMO
     Route: 065

REACTIONS (5)
  - Liver function test increased [Not Recovered/Not Resolved]
  - Therapeutic product effect decreased [Unknown]
  - White blood cell count increased [Unknown]
  - Rash [Unknown]
  - Eczema [Unknown]
